FAERS Safety Report 21171826 (Version 1)
Quarter: 2022Q3

REPORT INFORMATION
  Report Type: Spontaneous
  Country: US (occurrence: US)
  Receive Date: 20220804
  Receipt Date: 20220804
  Transmission Date: 20221027
  Serious: No
  Sender: FDA-Public Use
  Company Number: US-GUERBET-US-20220048

PATIENT
  Age: 60 Year
  Sex: Female

DRUGS (1)
  1. DOTAREM [Suspect]
     Active Substance: GADOTERATE MEGLUMINE
     Indication: Product used for unknown indication
     Dosage: 18 (UNIT NOT PROVIDED)
     Route: 065
     Dates: start: 20220528, end: 20220528

REACTIONS (3)
  - Urticaria [Unknown]
  - Rash erythematous [Unknown]
  - Sneezing [Unknown]

NARRATIVE: CASE EVENT DATE: 20220528
